FAERS Safety Report 18003160 (Version 4)
Quarter: 2020Q4

REPORT INFORMATION
  Report Type: Report from Study
  Country: US (occurrence: US)
  Receive Date: 20200710
  Receipt Date: 20201208
  Transmission Date: 20210113
  Serious: Yes (Hospitalization)
  Sender: FDA-Public Use
  Company Number: US-TAKEDA-2019TUS066214

PATIENT
  Sex: Female

DRUGS (1)
  1. BRIGATINIB [Suspect]
     Active Substance: BRIGATINIB
     Indication: LUNG NEOPLASM MALIGNANT
     Dosage: 180 MILLIGRAM, QD
     Route: 048
     Dates: start: 20191031

REACTIONS (7)
  - Arthralgia [Unknown]
  - Rash [Recovered/Resolved]
  - Vitamin D decreased [Unknown]
  - Hepatic enzyme increased [Unknown]
  - Rash pruritic [Recovered/Resolved]
  - Anxiety [Unknown]
  - Colon operation [Unknown]
